FAERS Safety Report 17836717 (Version 4)
Quarter: 2020Q4

REPORT INFORMATION
  Report Type: Report from Study
  Country: AU (occurrence: AU)
  Receive Date: 20200529
  Receipt Date: 20201016
  Transmission Date: 20210113
  Serious: Yes (Hospitalization, Other)
  Sender: FDA-Public Use
  Company Number: AU-REGENERON PHARMACEUTICALS, INC.-2020-36589

PATIENT

DRUGS (3)
  1. EYLEA [Suspect]
     Active Substance: AFLIBERCEPT
     Dosage: UNK, ONCE
     Route: 031
     Dates: start: 20180928, end: 20180928
  2. EYLEA [Suspect]
     Active Substance: AFLIBERCEPT
     Indication: NEOVASCULAR AGE-RELATED MACULAR DEGENERATION
     Dosage: DOSE AND FREQUENCY IS UNK. TTOTAL NUMBER OF DOSES ADMINISTERED PRIOR TO EVENT IS 3. DATE OF LAST DOS
     Route: 031
     Dates: start: 20180725, end: 20180725
  3. EYLEA [Suspect]
     Active Substance: AFLIBERCEPT
     Dosage: UNK, ONCE
     Route: 031
     Dates: start: 201808, end: 201808

REACTIONS (13)
  - Loss of consciousness [Recovered/Resolved]
  - Ovarian cancer [Unknown]
  - Product dose omission issue [Unknown]
  - Blood sodium decreased [Recovered/Resolved]
  - Hypertension [Unknown]
  - Visual impairment [Unknown]
  - Blood pressure inadequately controlled [Recovered/Resolved]
  - Malaise [Unknown]
  - Dyspnoea [Unknown]
  - Blood pressure fluctuation [Not Recovered/Not Resolved]
  - Headache [Unknown]
  - Headache [Recovered/Resolved]
  - Choroidal neovascularisation [Not Recovered/Not Resolved]

NARRATIVE: CASE EVENT DATE: 201911
